FAERS Safety Report 16860603 (Version 4)
Quarter: 2020Q1

REPORT INFORMATION
  Report Type: Spontaneous
  Country: ZA (occurrence: ZA)
  Receive Date: 20190927
  Receipt Date: 20200310
  Transmission Date: 20200409
  Serious: Yes (Other)
  Sender: FDA-Public Use
  Company Number: ZA-AMGEN-ZAFSP2019150936

PATIENT
  Age: 43 Year
  Sex: Female
  Weight: 78.9 kg

DRUGS (3)
  1. STILPANE [CAFFEINE;CODEINE PHOSPHATE;MEPROBAMATE;PARACETAMOL] [Concomitant]
     Active Substance: ACETAMINOPHEN\CAFFEINE\CODEINE PHOSPHATE\MEPROBAMATE
     Dosage: UNK
  2. COXLEON [Concomitant]
     Active Substance: CELECOXIB
     Dosage: 200 MILLIGRAM, BID
  3. ENBREL [Suspect]
     Active Substance: ETANERCEPT
     Indication: RHEUMATOID ARTHRITIS
     Dosage: 50 MILLIGRAM, QWK
     Route: 058
     Dates: start: 20190904

REACTIONS (8)
  - Dermatitis acneiform [Not Recovered/Not Resolved]
  - Vaginal haemorrhage [Recovering/Resolving]
  - Protein urine present [Not Recovered/Not Resolved]
  - Arthralgia [Not Recovered/Not Resolved]
  - Pyrexia [Recovering/Resolving]
  - Urinary tract infection [Unknown]
  - Cystitis [Not Recovered/Not Resolved]
  - Vaginal discharge [Recovered/Resolved]

NARRATIVE: CASE EVENT DATE: 20190907
